FAERS Safety Report 9630201 (Version 2)
Quarter: 2013Q4

REPORT INFORMATION
  Report Type: Spontaneous
  Country: US (occurrence: US)
  Receive Date: 20131017
  Receipt Date: 20131017
  Transmission Date: 20140711
  Serious: No
  Sender: FDA-Public Use
  Company Number: US-GILEAD-2013-0084247

PATIENT
  Sex: Female

DRUGS (3)
  1. LETAIRIS [Suspect]
     Indication: PULMONARY HYPERTENSION
     Dosage: 10 MG, QD
     Dates: start: 20081126
  2. LETAIRIS [Suspect]
     Indication: SCLERODERMA
  3. SILDENAFIL CITRATE [Concomitant]

REACTIONS (2)
  - Wound [Unknown]
  - Dyspnoea [Unknown]
